FAERS Safety Report 10191057 (Version 3)
Quarter: 2014Q2

REPORT INFORMATION
  Report Type: Spontaneous
  Country: GB (occurrence: GB)
  Receive Date: 20140523
  Receipt Date: 20140612
  Transmission Date: 20141212
  Serious: Yes (Hospitalization)
  Sender: FDA-Public Use
  Company Number: GB-JNJFOC-20140510103

PATIENT
  Age: 24 Month
  Sex: Female

DRUGS (1)
  1. CALPOL SIX PLUS SUGAR FREE [Suspect]
     Indication: ACCIDENTAL EXPOSURE TO PRODUCT BY CHILD
     Dosage: NEARLY A WHOLE 80ML BOTTLE
     Route: 048

REACTIONS (3)
  - Accidental exposure to product by child [Unknown]
  - Expired product administered [Unknown]
  - Product closure issue [Unknown]
